FAERS Safety Report 7914595-4 (Version None)
Quarter: 2011Q4

REPORT INFORMATION
  Report Type: 
  Country: None (occurrence: None)
  Receive Date: 20111115
  Receipt Date: 20111102
  Transmission Date: 20120403
  Serious: Yes (Other)
  Sender: FDA-Public Use
  Company Number: PHHY2011JP45981

PATIENT
  Age: 76 Year
  Sex: Male

DRUGS (2)
  1. CYCLOSPORINE [Suspect]
     Indication: MYELODYSPLASTIC SYNDROME
     Dosage: 50 MG
     Route: 048
  2. PREDNISOLONE [Suspect]
     Indication: MYELODYSPLASTIC SYNDROME
     Dosage: 15 MG

REACTIONS (6)
  - INJURY [None]
  - LYMPHATIC DISORDER [None]
  - LYMPHADENOPATHY [None]
  - LACERATION [None]
  - NOCARDIOSIS [None]
  - FALL [None]
